FAERS Safety Report 6500360-1 (Version None)
Quarter: 2009Q4

REPORT INFORMATION
  Report Type: 
  Country: None (occurrence: None)
  Receive Date: 20091216
  Receipt Date: 20091202
  Transmission Date: 20100525
  Serious: Yes (Hospitalization, Other)
  Sender: FDA-Public Use
  Company Number: PHHY2008CA22750

PATIENT
  Sex: Female

DRUGS (2)
  1. SANDOSTATIN LAR [Suspect]
     Indication: CARCINOID TUMOUR
     Dosage: 30 MG EVERY 4 WEEKS
     Route: 030
     Dates: start: 20040826
  2. SANDOSTATIN LAR [Suspect]
     Dosage: 40 MG EVERY 3 WEEKS
     Route: 030

REACTIONS (3)
  - HYPOGLYCAEMIA [None]
  - PALLIATIVE CARE [None]
  - UNRESPONSIVE TO STIMULI [None]
